FAERS Safety Report 4628313-9 (Version None)
Quarter: 2005Q2

REPORT INFORMATION
  Report Type: 
  Country: None (occurrence: None)
  Receive Date: 20050401
  Receipt Date: 20050318
  Transmission Date: 20051028
  Serious: Yes (Hospitalization)
  Sender: FDA-Public Use
  Company Number: 0500007EN0020P

PATIENT
  Age: 8 Year

DRUGS (4)
  1. ONCASPAR [Suspect]
     Indication: ACUTE LYMPHOCYTIC LEUKAEMIA
     Dates: start: 20030609, end: 20030609
  2. VINCRISTINE [Suspect]
     Indication: ACUTE LYMPHOCYTIC LEUKAEMIA
     Dosage: UNKNOWN QWEEK
     Dates: start: 20030606, end: 20030620
  3. DAUNOMYCIN [Suspect]
     Indication: ACUTE LYMPHOCYTIC LEUKAEMIA
     Dosage: UNKNOWN; QD
     Dates: start: 20030623, end: 20030624
  4. DEXAMETHASONE [Suspect]
     Indication: ACUTE LYMPHOCYTIC LEUKAEMIA
     Dosage: UNKNOWN; QD
     Route: 065
     Dates: start: 20030606, end: 20030703

REACTIONS (13)
  - DISSEMINATED INTRAVASCULAR COAGULATION [None]
  - ECCHYMOSIS [None]
  - FLUID OVERLOAD [None]
  - LIVER DISORDER [None]
  - NECROSIS [None]
  - OEDEMA [None]
  - PANCYTOPENIA [None]
  - POST PROCEDURAL CELLULITIS [None]
  - POST PROCEDURAL COMPLICATION [None]
  - POST PROCEDURAL OEDEMA [None]
  - PSEUDOMONAL SEPSIS [None]
  - PSEUDOMONAS INFECTION [None]
  - SHOCK [None]
